FAERS Safety Report 16253635 (Version 1)
Quarter: 2019Q2

REPORT INFORMATION
  Report Type: Other
  Country: JP (occurrence: JP)
  Receive Date: 20190430
  Receipt Date: 20190430
  Transmission Date: 20190711
  Serious: Yes (Death, Hospitalization, Other)
  Sender: FDA-Public Use
  Company Number: JP-LUPIN HEALTHCARE (UK) LIMITED-2019-02495

PATIENT
  Age: 34 Year
  Sex: Male

DRUGS (1)
  1. SERTRALINE 50MG TABLETS [Suspect]
     Active Substance: SERTRALINE HYDROCHLORIDE
     Indication: PRODUCT USED FOR UNKNOWN INDICATION
     Dosage: UNK
     Route: 065
     Dates: start: 201603, end: 201605

REACTIONS (1)
  - Neuroleptic malignant syndrome [Fatal]
